FAERS Safety Report 9916332 (Version 2)
Quarter: 2014Q2

REPORT INFORMATION
  Report Type: Spontaneous
  Country: JP (occurrence: JP)
  Receive Date: 20140221
  Receipt Date: 20140414
  Transmission Date: 20141212
  Serious: Yes (Other)
  Sender: FDA-Public Use
  Company Number: JP-JNJFOC-20140211036

PATIENT
  Age: 84 Year
  Sex: Female
  Weight: 44 kg

DRUGS (7)
  1. XARELTO [Suspect]
     Indication: ATRIAL TACHYCARDIA
     Route: 048
     Dates: start: 20140114, end: 20140203
  2. XARELTO [Suspect]
     Indication: CEREBROVASCULAR ACCIDENT PROPHYLAXIS
     Route: 048
     Dates: start: 20140114, end: 20140203
  3. XARELTO [Suspect]
     Indication: ATRIAL FIBRILLATION
     Route: 048
     Dates: start: 20140114, end: 20140203
  4. ROZEREM [Concomitant]
     Route: 048
     Dates: start: 20131226
  5. LASIX [Concomitant]
     Route: 048
     Dates: start: 20140106, end: 20140214
  6. MAGMITT [Concomitant]
     Route: 048
     Dates: start: 20140102, end: 20140210
  7. ALDACTONE A [Concomitant]
     Route: 048
     Dates: start: 20140106, end: 20140214

REACTIONS (1)
  - Interstitial lung disease [Unknown]
